FAERS Safety Report 8115348-7 (Version None)
Quarter: 2012Q1

REPORT INFORMATION
  Report Type: 
  Country: None (occurrence: None)
  Receive Date: 20120206
  Receipt Date: 20120206
  Transmission Date: 20120608
  Serious: Yes (Other)
  Sender: FDA-Public Use
  Company Number: None

PATIENT
  Age: 33 Year
  Sex: Female
  Weight: 54.431 kg

DRUGS (1)
  1. MIRENA [Suspect]
     Indication: CONTRACEPTION
     Route: 066
     Dates: start: 20080905, end: 20120129

REACTIONS (5)
  - HAIR DISORDER [None]
  - HAEMATOCHEZIA [None]
  - PAIN [None]
  - BACK PAIN [None]
  - CONSTIPATION [None]
